FAERS Safety Report 9158164 (Version 1)
Quarter: 2013Q1

REPORT INFORMATION
  Report Type: Report from Study
  Country: US (occurrence: US)
  Receive Date: 20130312
  Receipt Date: 20130312
  Transmission Date: 20140127
  Serious: No
  Sender: FDA-Public Use
  Company Number: US-009507513-1303USA002992

PATIENT
  Sex: Male

DRUGS (3)
  1. BOCEPREVIR [Suspect]
     Indication: CHRONIC HEPATITIS C
     Dosage: UNK
     Dates: start: 20111007
  2. RIBAVIRIN [Suspect]
     Indication: CHRONIC HEPATITIS C
     Dosage: UNK
     Dates: start: 20111007
  3. PEGINTERFERON ALFA-2A [Suspect]
     Indication: CHRONIC HEPATITIS C
     Dosage: 180 MICROGRAM, QW
     Dates: start: 20111007

REACTIONS (7)
  - Malaise [Unknown]
  - Nausea [Unknown]
  - Painful defaecation [Unknown]
  - Headache [Unknown]
  - Emotional disorder [Unknown]
  - Sensory disturbance [Unknown]
  - Rash [Unknown]
